FAERS Safety Report 9096676 (Version 2)
Quarter: 2015Q1

REPORT INFORMATION
  Report Type: Report from Study
  Country: BR (occurrence: BR)
  Receive Date: 20130211
  Receipt Date: 20150317
  Transmission Date: 20150721
  Serious: Yes (Other)
  Sender: FDA-Public Use
  Company Number: PHHY2013BR011811

PATIENT
  Age: 12 Year
  Sex: Male
  Weight: 41.2 kg

DRUGS (2)
  1. RITALIN [Suspect]
     Active Substance: METHYLPHENIDATE HYDROCHLORIDE
     Indication: ATTENTION DEFICIT/HYPERACTIVITY DISORDER
     Dosage: 10 MG, TID (TWO OR THREE TIMES PER DAY)
     Route: 048
     Dates: start: 2007, end: 2009
  2. RECONTER [Concomitant]
     Active Substance: ESCITALOPRAM OXALATE
     Indication: ANXIETY
     Dosage: UNK
     Route: 065

REACTIONS (7)
  - Infection susceptibility increased [Unknown]
  - Decreased appetite [Recovered/Resolved]
  - Abdominal pain [Recovering/Resolving]
  - Logorrhoea [Not Recovered/Not Resolved]
  - Retching [Recovering/Resolving]
  - Weight decreased [Recovered/Resolved]
  - Neutropenia [Recovering/Resolving]

NARRATIVE: CASE EVENT DATE: 2010
